FAERS Safety Report 8425199-1 (Version None)
Quarter: 2012Q2

REPORT INFORMATION
  Report Type: 
  Country: None (occurrence: None)
  Receive Date: 20120611
  Receipt Date: 20120601
  Transmission Date: 20120825
  Serious: No
  Sender: FDA-Public Use
  Company Number: US-PFIZER INC-2012135080

PATIENT
  Sex: Male
  Weight: 170 kg

DRUGS (1)
  1. DOXYCYCLINE HYCLATE [Suspect]
     Indication: STAPHYLOCOCCAL INFECTION
     Dosage: 100 MG, 2X/DAY
     Dates: end: 20120101

REACTIONS (2)
  - DRUG HYPERSENSITIVITY [None]
  - NAUSEA [None]
